FAERS Safety Report 8542476-4 (Version None)
Quarter: 2012Q3

REPORT INFORMATION
  Report Type: 
  Country: None (occurrence: None)
  Receive Date: 20120726
  Receipt Date: 20111228
  Transmission Date: 20120928
  Serious: Yes (Hospitalization, Other)
  Sender: FDA-Public Use
  Company Number: US-ASTRAZENECA-2009SE30269

PATIENT
  Age: 36 Year
  Sex: Male
  Weight: 105.2 kg

DRUGS (14)
  1. ULTRAM [Concomitant]
     Dates: start: 20031126
  2. MORPHINE SULFATE [Concomitant]
     Dates: start: 20051229
  3. PANCRELIPASE [Concomitant]
     Dosage: FOUR TABLETS
  4. TRAZODONE HYDROCHLORIDE [Concomitant]
     Dates: start: 20021018
  5. PROPRANOLOL [Concomitant]
     Indication: ANXIETY
     Dosage: 20 MG EVERY FOUR HOURS P.R.N
     Dates: start: 20021018
  6. SEROQUEL [Suspect]
     Indication: POST-TRAUMATIC STRESS DISORDER
     Dosage: 100 MG-900 MG
     Route: 048
     Dates: start: 20000101
  7. DEPAKOTE [Concomitant]
     Dates: start: 20040101, end: 20060101
  8. FLEXERIL [Concomitant]
     Dates: start: 20031126
  9. SEROQUEL [Suspect]
     Route: 048
     Dates: start: 20021018
  10. ZYPREXA [Concomitant]
     Indication: POST-TRAUMATIC STRESS DISORDER
     Dates: start: 20060101
  11. ETODOLAC [Concomitant]
     Dates: start: 20031126
  12. ZOLOFT [Concomitant]
     Dates: start: 20021018
  13. LIDOCAINE [Concomitant]
     Dates: start: 20031124
  14. CHANTIX [Concomitant]
     Indication: EX-TOBACCO USER
     Dates: start: 20070605

REACTIONS (7)
  - TYPE 1 DIABETES MELLITUS [None]
  - OBESITY [None]
  - TYPE 2 DIABETES MELLITUS [None]
  - RENAL DISORDER [None]
  - FIBROMYALGIA [None]
  - PANCREATITIS [None]
  - INSULIN RESISTANT DIABETES [None]
